FAERS Safety Report 6640638-4 (Version None)
Quarter: 2010Q1

REPORT INFORMATION
  Report Type: 
  Country: None (occurrence: None)
  Receive Date: 20100318
  Receipt Date: 20100305
  Transmission Date: 20100710
  Serious: Yes (Hospitalization)
  Sender: FDA-Public Use
  Company Number: US-ELI_LILLY_AND_COMPANY-US200906001549

PATIENT
  Sex: Male
  Weight: 103.86 kg

DRUGS (8)
  1. BYETTA [Suspect]
     Indication: TYPE 2 DIABETES MELLITUS
     Dosage: UNK, UNKNOWN
     Route: 065
     Dates: start: 20060801, end: 20070401
  2. METFORMIN HYDROCHLORIDE [Concomitant]
     Indication: TYPE 2 DIABETES MELLITUS
     Dosage: 1000 MG, 2/D
  3. ACTOS [Concomitant]
  4. MICARDIS HCT [Concomitant]
  5. NEXIUM [Concomitant]
  6. ASPIRIN [Concomitant]
  7. LIPITOR [Concomitant]
     Dosage: 10 MG, UNK
  8. ATENOLOL [Concomitant]
     Dosage: 25 MG, UNK

REACTIONS (2)
  - PANCREATITIS ACUTE [None]
  - PANCREATITIS RELAPSING [None]
